FAERS Safety Report 18759033 (Version 1)
Quarter: 2021Q1

REPORT INFORMATION
  Report Type: Spontaneous
  Country: US (occurrence: US)
  Receive Date: 20210120
  Receipt Date: 20210120
  Transmission Date: 20210419
  Serious: Yes (Hospitalization, Other)
  Sender: FDA-Public Use
  Company Number: US-AUROBINDO-AUR-APL-2020-038562

PATIENT
  Age: 25 Year
  Sex: Male
  Weight: 57 kg

DRUGS (2)
  1. CLOZAPINE 100 MG TABLET USP [Suspect]
     Active Substance: CLOZAPINE
     Indication: SCHIZOPHRENIA
     Dosage: 450 MILLIGRAM, ONCE A DAY (200 MG TWICE A DAY AND 50 MG AT DINNER)
     Route: 048
     Dates: start: 20200427, end: 20200714
  2. ZYPREXA [Concomitant]
     Active Substance: OLANZAPINE
     Indication: PRODUCT USED FOR UNKNOWN INDICATION
     Dosage: 10 MILLIGRAM, TWO TIMES A DAY
     Route: 048

REACTIONS (1)
  - Neutropenia [Recovered/Resolved]

NARRATIVE: CASE EVENT DATE: 20200713
